FAERS Safety Report 8776962 (Version 3)
Quarter: 2013Q1

REPORT INFORMATION
  Report Type: Spontaneous
  Country: US (occurrence: US)
  Receive Date: 20120911
  Receipt Date: 20130306
  Transmission Date: 20140127
  Serious: Yes (Hospitalization)
  Sender: FDA-Public Use
  Company Number: US-GLAXOSMITHKLINE-A0992657A

PATIENT
  Age: 81 Year
  Sex: Female
  Weight: 52.3 kg

DRUGS (5)
  1. FLOLAN [Suspect]
     Indication: PULMONARY ARTERIAL HYPERTENSION
     Dosage: 5MG UNKNOWN
     Route: 065
  2. REVATIO [Suspect]
     Indication: PULMONARY ARTERIAL HYPERTENSION
     Dosage: 80MG THREE TIMES PER DAY
     Route: 048
  3. CUBICIN [Concomitant]
  4. LETAIRIS [Concomitant]
     Indication: PULMONARY ARTERIAL HYPERTENSION
     Dosage: 5MG UNKNOWN
     Route: 065
  5. COUMADIN [Concomitant]
     Indication: PRODUCT USED FOR UNKNOWN INDICATION
     Route: 065

REACTIONS (5)
  - Hip fracture [Recovered/Resolved]
  - Fall [Unknown]
  - Joint swelling [Unknown]
  - Diarrhoea [Unknown]
  - Anaemia [Unknown]
